FAERS Safety Report 6533207-8 (Version None)
Quarter: 2010Q1

REPORT INFORMATION
  Report Type: 
  Country: None (occurrence: None)
  Receive Date: 20100111
  Receipt Date: 20100104
  Transmission Date: 20100710
  Serious: Yes (Death)
  Sender: FDA-Public Use
  Company Number: US-PFIZER INC-2010001595

PATIENT
  Age: 72 Year
  Sex: Male

DRUGS (7)
  1. AMLODIPINE BESYLATE [Suspect]
     Route: 048
  2. PHENYTOIN AND PHENYTOIN SODIUM [Suspect]
     Route: 048
  3. SERTRALINE HCL [Suspect]
     Route: 048
  4. HYDROXYZINE PAMOATE [Suspect]
     Route: 048
  5. CORTISONE ACETATE [Suspect]
     Route: 048
  6. CLONIDINE [Suspect]
     Route: 048
  7. CARBAMAZEPINE [Suspect]
     Route: 048

REACTIONS (1)
  - COMPLETED SUICIDE [None]
